FAERS Safety Report 13863330 (Version 6)
Quarter: 2018Q4

REPORT INFORMATION
  Report Type: Spontaneous
  Country: ES (occurrence: ES)
  Receive Date: 20170814
  Receipt Date: 20181018
  Transmission Date: 20190204
  Serious: Yes (Other)
  Sender: FDA-Public Use
  Company Number: ES-SUN PHARMACEUTICAL INDUSTRIES LTD-2017RR-147558

PATIENT
  Age: 53 Year
  Sex: Male

DRUGS (1)
  1. DICLOFENAC [Suspect]
     Active Substance: DICLOFENAC
     Indication: PRODUCT USED FOR UNKNOWN INDICATION
     Dosage: 50 MG SINGLE DOSE
     Route: 048
     Dates: start: 20160510, end: 20160510

REACTIONS (2)
  - Myocardial infarction [Unknown]
  - Kounis syndrome [Unknown]

NARRATIVE: CASE EVENT DATE: 20160510
